FAERS Safety Report 17471195 (Version 5)
Quarter: 2020Q2

REPORT INFORMATION
  Report Type: Spontaneous
  Country: US (occurrence: US)
  Receive Date: 20200228
  Receipt Date: 20200415
  Transmission Date: 20200713
  Serious: Yes (Hospitalization, Other)
  Sender: FDA-Public Use
  Company Number: US-UNITED THERAPEUTICS-UNT-2020-003207

PATIENT
  Age: 66 Year
  Sex: Female
  Weight: 102.95 kg

DRUGS (2)
  1. REMODULIN [Suspect]
     Active Substance: TREPROSTINIL
     Indication: PULMONARY ARTERIAL HYPERTENSION
     Dosage: 0.17375 ?G/KG, CONTINUING
     Route: 041
     Dates: start: 20180921
  2. REMODULIN [Suspect]
     Active Substance: TREPROSTINIL
     Dosage: 0.17675 ?G/KG, CONTINUING
     Route: 041

REACTIONS (4)
  - Dyspnoea [Recovered/Resolved]
  - Therapy interrupted [Recovered/Resolved]
  - Cardiac failure congestive [Recovered/Resolved]
  - Drug intolerance [Recovered/Resolved]

NARRATIVE: CASE EVENT DATE: 20200224
